FAERS Safety Report 7465681-7 (Version None)
Quarter: 2011Q2

REPORT INFORMATION
  Report Type: 
  Country: None (occurrence: None)
  Receive Date: 20110509
  Receipt Date: 20110502
  Transmission Date: 20111010
  Serious: Yes (Hospitalization)
  Sender: FDA-Public Use
  Company Number: B0542074A

PATIENT
  Age: 75 Year
  Sex: Female
  Weight: 50 kg

DRUGS (9)
  1. ALDACTONE [Concomitant]
     Route: 048
  2. TAHOR [Concomitant]
     Route: 065
  3. PENICILLIN G [Concomitant]
     Indication: ERYSIPELAS
     Route: 065
  4. IMOVANE [Concomitant]
     Route: 065
  5. NEXIUM [Concomitant]
     Route: 065
  6. ARIXTRA [Suspect]
     Indication: THROMBOSIS PROPHYLAXIS
     Dosage: 5MG PER DAY
     Route: 058
     Dates: start: 20080917, end: 20080927
  7. AUGMENTIN [Concomitant]
     Indication: ERYSIPELAS
     Route: 065
     Dates: start: 20080917
  8. OFLOCET [Concomitant]
     Indication: ERYSIPELAS
     Route: 065
  9. LODOZ [Concomitant]
     Route: 065

REACTIONS (7)
  - BLOOD UREA INCREASED [None]
  - CIRCULATORY COLLAPSE [None]
  - ANAEMIA [None]
  - BLOOD CREATININE INCREASED [None]
  - PERITONEAL HAEMATOMA [None]
  - MUSCLE HAEMORRHAGE [None]
  - ABDOMINAL PAIN [None]
